FAERS Safety Report 14333712 (Version 1)
Quarter: 2017Q4

REPORT INFORMATION
  Report Type: Spontaneous
  Country: IT (occurrence: IT)
  Receive Date: 20171228
  Receipt Date: 20171228
  Transmission Date: 20180321
  Serious: Yes (Hospitalization)
  Sender: FDA-Public Use
  Company Number: IT-PFIZER INC-2017547930

PATIENT
  Sex: Female

DRUGS (5)
  1. AMLODIPINE BESILATE [Suspect]
     Active Substance: AMLODIPINE BESYLATE
     Dosage: 5 MG, 1X/DAY
  2. PLAVIX [Concomitant]
     Active Substance: CLOPIDOGREL BISULFATE
  3. EUTIROX [Concomitant]
     Active Substance: LEVOTHYROXINE SODIUM
  4. LASIX [Concomitant]
     Active Substance: FUROSEMIDE
  5. LOBIVON [Concomitant]
     Active Substance: NEBIVOLOL HYDROCHLORIDE

REACTIONS (2)
  - Lip oedema [Recovered/Resolved with Sequelae]
  - Tongue oedema [Recovered/Resolved with Sequelae]
